FAERS Safety Report 6297933-0 (Version None)
Quarter: 2009Q3

REPORT INFORMATION
  Report Type: 
  Country: None (occurrence: None)
  Receive Date: 20090805
  Receipt Date: 20090728
  Transmission Date: 20100115
  Serious: Yes (Hospitalization)
  Sender: FDA-Public Use
  Company Number: A0800182A

PATIENT
  Age: 62 Year
  Sex: Female
  Weight: 63.3 kg

DRUGS (2)
  1. MELPHALAN [Suspect]
     Indication: MULTIPLE MYELOMA
     Dosage: 200MGM2 PER DAY
     Route: 048
     Dates: start: 20070718, end: 20070718
  2. BORTEZOMIB [Suspect]
     Indication: MULTIPLE MYELOMA
     Dosage: 1MGM2 PER DAY
     Route: 042
     Dates: start: 20070716, end: 20070719

REACTIONS (2)
  - HYPOVOLAEMIA [None]
  - PRESYNCOPE [None]
